FAERS Safety Report 5329528-7 (Version None)
Quarter: 2007Q2

REPORT INFORMATION
  Report Type: 
  Country: None (occurrence: None)
  Receive Date: 20070223
  Receipt Date: 20060324
  Transmission Date: 20071010
  Serious: Yes (Other)
  Sender: FDA-Public Use
  Company Number: WAES 0603USA04249

PATIENT
  Age: 50 Year
  Sex: Female

DRUGS (1)
  1. ZOCOR [Suspect]
     Dosage: PO
     Route: 048

REACTIONS (4)
  - DYSPNOEA [None]
  - NAUSEA [None]
  - PRURITUS [None]
  - URTICARIA [None]
